FAERS Safety Report 25548139 (Version 1)
Quarter: 2025Q3

REPORT INFORMATION
  Report Type: Spontaneous
  Country: EU (occurrence: EU)
  Receive Date: 20250714
  Receipt Date: 20250714
  Transmission Date: 20251021
  Serious: Yes (Hospitalization, Other)
  Sender: EPIC PHARM
  Company Number: EU-EPICPHARMA-PT-2025EPCLIT00813

PATIENT
  Age: 68 Year
  Sex: Male

DRUGS (2)
  1. CARBOPLATIN [Suspect]
     Active Substance: CARBOPLATIN
     Indication: Oropharyngeal squamous cell carcinoma
     Route: 065
  2. CARBOPLATIN [Suspect]
     Active Substance: CARBOPLATIN
     Indication: Oropharyngeal squamous cell carcinoma

REACTIONS (6)
  - Intervertebral discitis [Recovering/Resolving]
  - Pneumonia fungal [Unknown]
  - Haematotoxicity [Unknown]
  - Skin toxicity [Unknown]
  - Product use in unapproved indication [Unknown]
  - Product dose omission issue [Unknown]
